FAERS Safety Report 18118802 (Version 1)
Quarter: 2020Q3

REPORT INFORMATION
  Report Type: Spontaneous
  Country: US (occurrence: US)
  Receive Date: 20200805
  Receipt Date: 20200805
  Transmission Date: 20201103
  Serious: No
  Sender: FDA-Public Use
  Company Number: None

PATIENT
  Age: 23 Year
  Sex: Female

DRUGS (1)
  1. HUMIRA [Suspect]
     Active Substance: ADALIMUMAB
     Indication: CROHN^S DISEASE
     Dosage: ?          OTHER DOSE:40MG/0.4ML;OTHER ROUTE:UNDER THE SKIN?
     Dates: start: 202005

REACTIONS (2)
  - Injection site extravasation [None]
  - Device defective [None]

NARRATIVE: CASE EVENT DATE: 20200724
